FAERS Safety Report 18312676 (Version 1)
Quarter: 2020Q3

REPORT INFORMATION
  Report Type: Spontaneous
  Country: DE (occurrence: DE)
  Receive Date: 20200925
  Receipt Date: 20200925
  Transmission Date: 20201103
  Serious: Yes (Other)
  Sender: FDA-Public Use
  Company Number: DE-FRESENIUS KABI-FK202009859

PATIENT
  Age: 17 Year
  Sex: Male

DRUGS (5)
  1. METHYLPREDNISOLONE. [Suspect]
     Active Substance: METHYLPREDNISOLONE
     Indication: AUTOIMMUNE ENCEPHALOPATHY
  2. NOREPINEPHRINE. [Suspect]
     Active Substance: NOREPINEPHRINE
     Indication: CARDIOVASCULAR DISORDER
  3. LEVETIRACETAM. [Concomitant]
     Active Substance: LEVETIRACETAM
     Indication: AUTOIMMUNE ENCEPHALOPATHY
  4. PROPOFOL (MANUFACTURER UNKNOWN) [Suspect]
     Active Substance: PROPOFOL
     Indication: ANAESTHESIA
     Dosage: 10 MG/KGBW/HOUR
     Route: 041
  5. VALPROATE SODIUM. [Concomitant]
     Active Substance: VALPROATE SODIUM
     Indication: AUTOIMMUNE ENCEPHALOPATHY

REACTIONS (4)
  - Propofol infusion syndrome [Recovering/Resolving]
  - Myopathy [Recovering/Resolving]
  - Overdose [Recovering/Resolving]
  - Polyneuropathy [Recovering/Resolving]
